FAERS Safety Report 12286033 (Version 1)
Quarter: 2016Q2

REPORT INFORMATION
  Report Type: Spontaneous
  Country: US (occurrence: None)
  Receive Date: 20160419
  Receipt Date: 20160419
  Transmission Date: 20160815
  Serious: No
  Sender: FDA-Public Use
  Company Number: None

PATIENT
  Sex: Male

DRUGS (1)
  1. AVONEX [Suspect]
     Active Substance: INTERFERON BETA-1A
     Indication: MULTIPLE SCLEROSIS
     Dosage: 0.3MCG EVERY WEEK IM??FROM ~ 1 YEAR AGO TO CURRENT
     Route: 030

REACTIONS (2)
  - Muscle tightness [None]
  - Skin discolouration [None]
